FAERS Safety Report 12368040 (Version 1)
Quarter: 2016Q2

REPORT INFORMATION
  Report Type: Spontaneous
  Country: NL (occurrence: NL)
  Receive Date: 20160513
  Receipt Date: 20160513
  Transmission Date: 20160815
  Serious: Yes (Hospitalization)
  Sender: FDA-Public Use
  Company Number: NL-ACCORD-040264

PATIENT
  Age: 50 Year
  Sex: Female

DRUGS (3)
  1. METHOTREXATE [Suspect]
     Active Substance: METHOTREXATE
     Indication: NEUROSARCOIDOSIS
     Dosage: DRUG TAKEN FOR OVER A YEAR
  2. ADALIMUMAB [Suspect]
     Active Substance: ADALIMUMAB
     Indication: NEUROSARCOIDOSIS
  3. FOLIC ACID. [Concomitant]
     Active Substance: FOLIC ACID

REACTIONS (10)
  - Off label use [Unknown]
  - Blood albumin decreased [Unknown]
  - Mouth ulceration [Unknown]
  - Haemoglobin decreased [Unknown]
  - Gamma-glutamyltransferase increased [Unknown]
  - White blood cell count decreased [Unknown]
  - Acute kidney injury [Unknown]
  - Oral mucosal blistering [Unknown]
  - Chest pain [Unknown]
  - Dysphagia [Unknown]
